FAERS Safety Report 6943512-9 (Version None)
Quarter: 2010Q3

REPORT INFORMATION
  Report Type: 
  Country: None (occurrence: None)
  Receive Date: 20100826
  Receipt Date: 20100812
  Transmission Date: 20110219
  Serious: Yes (Disabling, Other)
  Sender: FDA-Public Use
  Company Number: US-ELI_LILLY_AND_COMPANY-US201008006027

PATIENT
  Sex: Female

DRUGS (1)
  1. FORTEO [Suspect]
     Indication: OSTEOPOROSIS
     Dosage: UNK, DAILY (1/D)
     Dates: start: 20060101, end: 20081001

REACTIONS (7)
  - ARTHROPATHY [None]
  - BONE DENSITY DECREASED [None]
  - DISABILITY [None]
  - FALL [None]
  - HIP FRACTURE [None]
  - PAIN [None]
  - SPINAL DISORDER [None]
